FAERS Safety Report 11682717 (Version 1)
Quarter: 2015Q4

REPORT INFORMATION
  Report Type: Other
  Country: FR (occurrence: FR)
  Receive Date: 20151029
  Receipt Date: 20151029
  Transmission Date: 20160304
  Serious: Yes (Hospitalization, Other)
  Sender: FDA-Public Use
  Company Number: FR-TAKEDA-2015MPI007047

PATIENT

DRUGS (19)
  1. KAYEXALATE [Concomitant]
     Active Substance: SODIUM POLYSTYRENE SULFONATE
     Indication: ARTERIOVENOUS FISTULA THROMBOSIS
     Dosage: 15 G, UNK
     Route: 065
  2. AMIKACIN [Concomitant]
     Active Substance: AMIKACIN
     Indication: SEPSIS
     Dosage: UNK
     Route: 065
  3. FLUINDIONE [Concomitant]
     Active Substance: FLUINDIONE
     Indication: ARTERIOVENOUS FISTULA THROMBOSIS
     Dosage: UNK
     Route: 065
  4. DEXAMETHASONE. [Suspect]
     Active Substance: DEXAMETHASONE
     Dosage: 160 MG, UNK
     Route: 042
     Dates: start: 20150622
  5. VELCADE [Suspect]
     Active Substance: BORTEZOMIB
     Dosage: 2.7 MG, UNK
     Route: 058
     Dates: start: 20150925
  6. VELCADE [Suspect]
     Active Substance: BORTEZOMIB
     Dosage: 2.7 MG, UNK
     Route: 058
     Dates: start: 20150911
  7. ENDOXAN [Suspect]
     Active Substance: CYCLOPHOSPHAMIDE
     Indication: PLASMA CELL MYELOMA
     Dosage: 500 MG, UNK
     Route: 048
     Dates: start: 20150622, end: 20150821
  8. SPECIAFOLDINE [Concomitant]
     Active Substance: FOLIC ACID
     Indication: ARTERIOVENOUS FISTULA THROMBOSIS
     Dosage: 5 MG, QD
     Route: 065
  9. INEXIUM [Concomitant]
     Active Substance: ESOMEPRAZOLE
     Indication: ARTERIOVENOUS FISTULA THROMBOSIS
     Dosage: 20 MG, QD
     Route: 065
  10. KARDEGIC [Concomitant]
     Active Substance: ASPIRIN LYSINE
     Indication: ARTERIOVENOUS FISTULA THROMBOSIS
     Dosage: 75 MG, QD
     Route: 065
  11. MOVICOL [Concomitant]
     Active Substance: POLYETHYLENE GLYCOL 3350\POTASSIUM CHLORIDE\SODIUM BICARBONATE\SODIUM CHLORIDE
     Indication: ARTERIOVENOUS FISTULA THROMBOSIS
     Dosage: UNK
     Route: 065
  12. CALCIPARINE [Concomitant]
     Active Substance: HEPARIN CALCIUM
     Indication: ARTERIOVENOUS FISTULA THROMBOSIS
     Dosage: UNK
     Route: 065
  13. VELCADE [Suspect]
     Active Substance: BORTEZOMIB
     Indication: PLASMA CELL MYELOMA
     Dosage: 10.8 MG, UNK
     Route: 058
     Dates: start: 20150622
  14. VELCADE [Suspect]
     Active Substance: BORTEZOMIB
     Dosage: 2.7 MG, UNK
     Route: 058
     Dates: start: 20151002
  15. VELCADE [Suspect]
     Active Substance: BORTEZOMIB
     Dosage: 2.7 MG, UNK
     Route: 058
     Dates: start: 20150918
  16. DEXAMETHASONE. [Suspect]
     Active Substance: DEXAMETHASONE
     Indication: PLASMA CELL MYELOMA
     Dosage: 40 MG, UNK
     Route: 042
  17. VANCOMYCIN [Concomitant]
     Active Substance: VANCOMYCIN
     Indication: SEPSIS
     Dosage: UNK
     Route: 065
  18. LASILIX [Concomitant]
     Active Substance: FUROSEMIDE
     Indication: ARTERIOVENOUS FISTULA THROMBOSIS
     Dosage: 40 MG, BID
     Route: 065
  19. TEMERIT [Concomitant]
     Active Substance: NEBIVOLOL
     Indication: ARTERIOVENOUS FISTULA THROMBOSIS
     Dosage: 2.5 MG, QD
     Route: 065

REACTIONS (2)
  - Arteriovenous fistula thrombosis [Recovered/Resolved]
  - Sepsis [Recovering/Resolving]

NARRATIVE: CASE EVENT DATE: 20150914
